FAERS Safety Report 19202333 (Version 4)
Quarter: 2021Q4

REPORT INFORMATION
  Report Type: Report from Study
  Country: JP (occurrence: JP)
  Receive Date: 20210430
  Receipt Date: 20211122
  Transmission Date: 20220303
  Serious: Yes (Other)
  Sender: FDA-Public Use
  Company Number: JP-NAPPMUNDI-GBR-2021-0086956

PATIENT
  Age: 80 Year
  Sex: Female

DRUGS (3)
  1. OXYCONTIN [Suspect]
     Active Substance: OXYCODONE HYDROCHLORIDE
     Indication: Product used for unknown indication
     Dosage: 10 MG, DAILY
     Route: 048
     Dates: start: 20210414
  2. OXYCONTIN [Suspect]
     Active Substance: OXYCODONE HYDROCHLORIDE
     Indication: Pain
     Dosage: 10 MG, DAILY
     Route: 048
     Dates: start: 20210407, end: 20210411
  3. OXYCONTIN [Suspect]
     Active Substance: OXYCODONE HYDROCHLORIDE
     Indication: Pain

REACTIONS (1)
  - Cardiac failure [Recovering/Resolving]

NARRATIVE: CASE EVENT DATE: 20210411
